FAERS Safety Report 6513083-X (Version None)
Quarter: 2009Q4

REPORT INFORMATION
  Report Type: 
  Country: None (occurrence: None)
  Receive Date: 20091222
  Receipt Date: 20091222
  Transmission Date: 20100525
  Serious: Yes (Life-Threatening, Hospitalization, Disabling)
  Sender: FDA-Public Use
  Company Number: None

PATIENT
  Sex: Female
  Weight: 71.2147 kg

DRUGS (1)
  1. YAZ [Suspect]
     Indication: ORAL CONTRACEPTION
     Dosage: 20MCG DAILY PO
     Route: 048
     Dates: start: 20071029, end: 20091202

REACTIONS (3)
  - INTRACARDIAC THROMBUS [None]
  - PULMONARY THROMBOSIS [None]
  - THROMBOSIS [None]
